FAERS Safety Report 24202306 (Version 1)
Quarter: 2024Q3

REPORT INFORMATION
  Report Type: Spontaneous
  Country: US (occurrence: US)
  Receive Date: 20240812
  Receipt Date: 20240812
  Transmission Date: 20241017
  Serious: Yes (Other)
  Sender: ALKEM
  Company Number: US-ALKEM LABORATORIES LIMITED-US-ALKEM-2024-18221

PATIENT
  Age: 4 Decade
  Sex: Female

DRUGS (4)
  1. CLOPIDOGREL [Suspect]
     Active Substance: CLOPIDOGREL BISULFATE
     Indication: Cerebral endovascular aneurysm repair
     Dosage: UNK
     Route: 065
  2. ASPIRIN [Suspect]
     Active Substance: ASPIRIN
     Indication: Cerebral endovascular aneurysm repair
     Dosage: 325 MILLIGRAM, QD
     Route: 048
  3. PRASUGREL [Suspect]
     Active Substance: PRASUGREL
     Indication: Cerebral endovascular aneurysm repair
     Dosage: 60 MILLIGRAM, QD
     Route: 048
  4. PRASUGREL [Suspect]
     Active Substance: PRASUGREL
     Dosage: 10 MILLIGRAM, QD
     Route: 048

REACTIONS (5)
  - Hydrocephalus [Recovered/Resolved]
  - Basilar artery perforation [Recovered/Resolved]
  - Subarachnoid haemorrhage [Recovered/Resolved]
  - Intraventricular haemorrhage [Recovered/Resolved]
  - Drug resistance [Unknown]
